FAERS Safety Report 10028413 (Version 1)
Quarter: 2014Q1

REPORT INFORMATION
  Report Type: Spontaneous
  Country: GB (occurrence: GB)
  Receive Date: 20140321
  Receipt Date: 20140321
  Transmission Date: 20141002
  Serious: Yes (Other)
  Sender: FDA-Public Use
  Company Number: GB-ASTRAZENECA-2014SE18782

PATIENT
  Sex: Male

DRUGS (8)
  1. ZESTORETIC [Suspect]
     Indication: HYPERTENSION
     Dosage: 10+12.5, DAILY
     Route: 048
  2. BISOPROLOL [Concomitant]
  3. METFORMIN [Concomitant]
  4. ASPIRIN [Concomitant]
  5. LANSOPRAZOLE [Concomitant]
  6. RISPERIDONE [Concomitant]
  7. SIMVASTATIN [Concomitant]
  8. FERROUS FUMARATE [Concomitant]

REACTIONS (4)
  - Brain injury [Not Recovered/Not Resolved]
  - Activities of daily living impaired [Not Recovered/Not Resolved]
  - Diet refusal [Not Recovered/Not Resolved]
  - Off label use [Not Recovered/Not Resolved]
